FAERS Safety Report 16690786 (Version 3)
Quarter: 2019Q3

REPORT INFORMATION
  Report Type: Report from Study
  Country: US (occurrence: US)
  Receive Date: 20190811
  Receipt Date: 20190823
  Transmission Date: 20191004
  Serious: Yes (Hospitalization)
  Sender: FDA-Public Use
  Company Number: US-B.I. PHARMACEUTICALS,INC./RIDGEFIELD-2019-MR-000785

PATIENT
  Age: 86 Year
  Sex: Male

DRUGS (1)
  1. OFEV [Suspect]
     Active Substance: NINTEDANIB
     Indication: IDIOPATHIC PULMONARY FIBROSIS
     Route: 048
     Dates: start: 20190715

REACTIONS (5)
  - Pulmonary oedema [Unknown]
  - Thrombosis [Recovered/Resolved]
  - Oxygen consumption increased [Not Recovered/Not Resolved]
  - Asthenia [Unknown]
  - Epistaxis [Not Recovered/Not Resolved]

NARRATIVE: CASE EVENT DATE: 20190721
